FAERS Safety Report 7940723-0 (Version None)
Quarter: 2011Q4

REPORT INFORMATION
  Report Type: 
  Country: None (occurrence: None)
  Receive Date: 20111128
  Receipt Date: 20111116
  Transmission Date: 20120403
  Serious: Yes (Hospitalization, Other)
  Sender: FDA-Public Use
  Company Number: US-JNJFOC-20111107178

PATIENT
  Sex: Female
  Weight: 72.62 kg

DRUGS (27)
  1. DURAGESIC-100 [Suspect]
     Route: 062
     Dates: start: 20050101
  2. PRINIVIL [Concomitant]
     Route: 065
     Dates: start: 20090101
  3. DURAGESIC-100 [Suspect]
     Route: 062
  4. NEXIUM [Concomitant]
     Route: 065
     Dates: start: 19950101
  5. SPIRIVA [Concomitant]
     Route: 065
  6. POTASSIUM CHLORIDE [Concomitant]
     Route: 065
     Dates: start: 19970101
  7. DURAGESIC-100 [Suspect]
     Route: 062
     Dates: start: 20050101
  8. DURAGESIC-100 [Suspect]
     Dosage: 100UG/HR 2 PATCHES
     Route: 062
  9. DUONEB [Concomitant]
     Route: 065
  10. NORCO [Concomitant]
     Route: 065
     Dates: start: 19960101
  11. LIDODERM [Concomitant]
     Route: 065
     Dates: start: 20080101
  12. BACTRIM [Concomitant]
     Route: 065
  13. SENNA PLUS [Concomitant]
     Route: 048
  14. VOLTAREN [Concomitant]
     Route: 065
     Dates: start: 20090101
  15. PAXIL [Concomitant]
     Route: 065
     Dates: start: 19950101
  16. PROTONIX [Concomitant]
     Route: 065
  17. TOPROL-XL [Concomitant]
     Route: 065
     Dates: start: 20090101
  18. COLACE [Concomitant]
     Route: 065
  19. DILAUDID [Concomitant]
     Route: 065
     Dates: start: 20050101
  20. ROXICODONE [Concomitant]
     Route: 065
  21. DEMADEX [Concomitant]
     Route: 065
     Dates: start: 19970101
  22. FEROSOL [Concomitant]
     Route: 065
  23. AUGMENTIN [Concomitant]
     Route: 065
  24. DURAGESIC-100 [Suspect]
     Indication: PAIN
     Dosage: 100UG/HR 2 PATCHES
     Route: 062
  25. DURAGESIC-100 [Suspect]
     Route: 062
  26. NYSTATIN [Concomitant]
     Route: 065
     Dates: start: 20050101
  27. POTASSIUM CHLORIDE [Concomitant]
     Route: 065

REACTIONS (3)
  - PRODUCT QUALITY ISSUE [None]
  - INAPPROPRIATE SCHEDULE OF DRUG ADMINISTRATION [None]
  - HYPOXIA [None]
